FAERS Safety Report 8521419-3 (Version None)
Quarter: 2012Q3

REPORT INFORMATION
  Report Type: 
  Country: None (occurrence: None)
  Receive Date: 20120719
  Receipt Date: 20120706
  Transmission Date: 20120928
  Serious: Yes (Other)
  Sender: FDA-Public Use
  Company Number: US-ACTELION-A-NJ2011-58236

PATIENT

DRUGS (22)
  1. KETOCONAZOLE [Concomitant]
     Route: 061
  2. SPIRONOLACTONE [Concomitant]
  3. ZETIA [Concomitant]
  4. NIFEDIPINE [Concomitant]
  5. ATENOLOL [Concomitant]
  6. AMARYL [Concomitant]
  7. SPIRIVA [Concomitant]
  8. ADVAIR DISKUS 100/50 [Concomitant]
  9. TRACLEER [Suspect]
     Indication: PULMONARY ARTERIAL HYPERTENSION
     Dosage: 125 MG, BID
     Route: 048
     Dates: start: 20090101, end: 20111212
  10. REVATIO [Concomitant]
  11. DIOVAN [Concomitant]
  12. LIPITOR [Concomitant]
  13. VITAMIN D [Concomitant]
  14. ACCUNEB [Concomitant]
  15. AMBIEN [Concomitant]
  16. ANASTROZOLE [Suspect]
     Dosage: 1 MG, OD
     Route: 048
  17. LETAIRIS [Concomitant]
  18. PLAVIX [Concomitant]
  19. TRACLEER [Suspect]
     Dosage: 62.5 MG, BID
     Route: 048
     Dates: start: 20120101, end: 20120522
  20. TRACLEER [Suspect]
     Dosage: 62.5 MG, OD
     Route: 048
     Dates: start: 20120118, end: 20120101
  21. JANUVIA [Concomitant]
  22. PRILOSEC [Concomitant]

REACTIONS (5)
  - BREAST CANCER [None]
  - FEELING ABNORMAL [None]
  - LIVER FUNCTION TEST ABNORMAL [None]
  - ALANINE AMINOTRANSFERASE INCREASED [None]
  - ASPARTATE AMINOTRANSFERASE INCREASED [None]
